FAERS Safety Report 17842726 (Version 1)
Quarter: 2020Q2

REPORT INFORMATION
  Report Type: Spontaneous
  Country: US (occurrence: US)
  Receive Date: 20200530
  Receipt Date: 20200530
  Transmission Date: 20200714
  Serious: No
  Sender: FDA-Public Use
  Company Number: US-HETERO-HET2020US00573

PATIENT
  Age: 70 Year
  Sex: Female

DRUGS (3)
  1. ALLEGRA [Concomitant]
     Active Substance: FEXOFENADINE HYDROCHLORIDE
     Indication: ASTHMA
     Dosage: UNK, Q.A.M.
  2. MONTELUKAST [Suspect]
     Active Substance: MONTELUKAST SODIUM
     Indication: ASTHMA
     Dosage: 10 MG, H.S.
     Route: 048
  3. SILDENAFIL. [Suspect]
     Active Substance: SILDENAFIL
     Indication: PRODUCT DISPENSING ERROR
     Dosage: 20 MG, H.S.
     Route: 048
     Dates: start: 20180806, end: 20181001

REACTIONS (7)
  - Dizziness [Recovered/Resolved]
  - Cough [Recovered/Resolved]
  - Product dispensing error [Recovered/Resolved]
  - Heart rate increased [Recovered/Resolved]
  - Vision blurred [Not Recovered/Not Resolved]
  - Rhinorrhoea [Recovered/Resolved]
  - Dyspepsia [Recovered/Resolved]

NARRATIVE: CASE EVENT DATE: 20180822
